FAERS Safety Report 16988111 (Version 1)
Quarter: 2019Q4

REPORT INFORMATION
  Report Type: Spontaneous
  Country: US (occurrence: US)
  Receive Date: 20191104
  Receipt Date: 20191104
  Transmission Date: 20200122
  Serious: Yes (Death, Hospitalization)
  Sender: FDA-Public Use
  Company Number: US-HORIZON-PRE-0487-2019

PATIENT
  Age: 53 Year
  Sex: Male

DRUGS (3)
  1. BALSALAZIDE [Suspect]
     Active Substance: BALSALAZIDE
     Indication: LIVER TRANSPLANT
  2. TACROLIMUS. [Suspect]
     Active Substance: TACROLIMUS
     Indication: LIVER TRANSPLANT
  3. PREDNISONE. [Suspect]
     Active Substance: PREDNISONE
     Indication: LIVER TRANSPLANT

REACTIONS (1)
  - Varicella zoster virus infection [Fatal]
